FAERS Safety Report 7164402-5 (Version None)
Quarter: 2010Q4

REPORT INFORMATION
  Report Type: 
  Country: None (occurrence: None)
  Receive Date: 20101215
  Receipt Date: 20101208
  Transmission Date: 20110411
  Serious: Yes (Other)
  Sender: FDA-Public Use
  Company Number: US-JNJCH-2010028352

PATIENT
  Age: 36 Year
  Sex: Male
  Weight: 113.4 kg

DRUGS (1)
  1. SUDAFED OM SINUS CONGESTION NASAL MIST [Suspect]
     Indication: NASAL CONGESTION
     Dosage: TEXT:TWICE PER DAY
     Route: 045

REACTIONS (1)
  - DEPENDENCE [None]
